FAERS Safety Report 13365553 (Version 1)
Quarter: 2017Q1

REPORT INFORMATION
  Report Type: Spontaneous
  Country: US (occurrence: US)
  Receive Date: 20170323
  Receipt Date: 20170323
  Transmission Date: 20170429
  Serious: No
  Sender: FDA-Public Use
  Company Number: US-WARNER CHILCOTT-2016-000939

PATIENT
  Age: 79 Year
  Sex: Female

DRUGS (10)
  1. STATIN                             /00084401/ [Concomitant]
     Active Substance: THIABENDAZOLE
     Indication: BLOOD CHOLESTEROL INCREASED
     Dosage: UNK UNK, UNKNOWN
     Route: 048
  2. GABAPENTIN. [Concomitant]
     Active Substance: GABAPENTIN
     Indication: SLEEP DISORDER
  3. FISH OIL [Concomitant]
     Active Substance: FISH OIL
     Indication: ROUTINE HEALTH MAINTENANCE
     Dosage: UNK UNK, UNKNOWN
     Route: 048
  4. VITAMIN D3 [Concomitant]
     Active Substance: CHOLECALCIFEROL
     Indication: ROUTINE HEALTH MAINTENANCE
     Dosage: UNK UNK, UNKNOWN
     Route: 048
  5. ASA [Concomitant]
     Active Substance: ASPIRIN
     Indication: ROUTINE HEALTH MAINTENANCE
     Dosage: 81 MG, QD
     Route: 048
  6. SYNTHROID [Concomitant]
     Active Substance: LEVOTHYROXINE SODIUM
     Indication: HYPOTHYROIDISM
     Dosage: .112 MG, UNKNOWN
     Route: 048
  7. GABAPENTIN. [Concomitant]
     Active Substance: GABAPENTIN
     Indication: NEURALGIA
     Dosage: UNK UNK, UNKNOWN
     Route: 048
  8. ESTRACE [Suspect]
     Active Substance: ESTRADIOL
     Indication: SMEAR CERVIX
     Dosage: UNK, 1/2 APPLICATOR ONCE
     Route: 067
     Dates: start: 201602, end: 201602
  9. ESTRACE [Suspect]
     Active Substance: ESTRADIOL
     Dosage: UNK, 1/2 APPLICATOR ONCE
     Route: 067
     Dates: start: 201603, end: 201603
  10. CALCIUM [Concomitant]
     Active Substance: CALCIUM
     Indication: ROUTINE HEALTH MAINTENANCE
     Dosage: UNK UNK, UNKNOWN
     Route: 048

REACTIONS (7)
  - Feeling abnormal [Recovered/Resolved]
  - Diarrhoea [Recovered/Resolved]
  - Abdominal distension [Recovered/Resolved]
  - Discomfort [Recovered/Resolved]
  - Headache [Recovered/Resolved]
  - Gastric disorder [Recovered/Resolved]
  - Feeling hot [Recovered/Resolved]

NARRATIVE: CASE EVENT DATE: 201602
